FAERS Safety Report 24339109 (Version 1)
Quarter: 2024Q3

REPORT INFORMATION
  Report Type: Spontaneous
  Country: US (occurrence: None)
  Receive Date: 20240918
  Receipt Date: 20240918
  Transmission Date: 20241016
  Serious: Yes (Hospitalization)
  Sender: Public
  Company Number: None

PATIENT
  Age: 63 Year
  Sex: Male
  Weight: 123.75 kg

DRUGS (10)
  1. BACLOFEN [Suspect]
     Active Substance: BACLOFEN
     Indication: Hiccups
     Route: 048
     Dates: start: 20240909, end: 20240909
  2. HYDROCORTISONE [Concomitant]
     Active Substance: HYDROCORTISONE\HYDROCORTISONE ACETATE
  3. DIGOXIN [Concomitant]
     Active Substance: DIGOXIN
  4. CALCITRIOL [Concomitant]
     Active Substance: CALCITRIOL
  5. Elquis [Concomitant]
  6. MIDODRINE [Concomitant]
     Active Substance: MIDODRINE
  7. FLUDROCORTISONE [Concomitant]
     Active Substance: FLUDROCORTISONE
  8. FLECAINIDE [Concomitant]
     Active Substance: FLECAINIDE
  9. POTASSIUM [Concomitant]
     Active Substance: POTASSIUM
  10. B COMPLEX WITH C [Concomitant]

REACTIONS (6)
  - Hypotension [None]
  - Dialysis [None]
  - Sedation [None]
  - Restlessness [None]
  - Somnolence [None]
  - Confusional state [None]

NARRATIVE: CASE EVENT DATE: 20240909
